FAERS Safety Report 13190795 (Version 1)
Quarter: 2017Q1

REPORT INFORMATION
  Report Type: Spontaneous
  Country: US (occurrence: US)
  Receive Date: 20170206
  Receipt Date: 20170206
  Transmission Date: 20170428
  Serious: No
  Sender: FDA-Public Use
  Company Number: US-TEIKOKU PHARMA USA-TPU2017-00069

PATIENT
  Age: 80 Year
  Sex: Male

DRUGS (2)
  1. LIDODERM [Suspect]
     Active Substance: LIDOCAINE
     Indication: ARTHRITIS
     Dosage: ONE PATCH TO SHOULDER AND ONE PATCH TO UPPER ARM FOR UP TO 12 HOURS
     Route: 061
  2. CORTISONE [Concomitant]
     Active Substance: CORTISONE\HYDROCORTISONE
     Indication: ARTHRITIS

REACTIONS (2)
  - Application site erythema [Unknown]
  - Incorrect drug administration duration [Unknown]
